FAERS Safety Report 4429497-8 (Version None)
Quarter: 2004Q3

REPORT INFORMATION
  Report Type: 
  Country: None (occurrence: None)
  Receive Date: 20040818
  Receipt Date: 20040818
  Transmission Date: 20050211
  Serious: Yes (Hospitalization)
  Sender: FDA-Public Use
  Company Number: None

PATIENT
  Age: 38 Year
  Sex: Male
  Weight: 104.7809 kg

DRUGS (4)
  1. ADVICOR [Suspect]
     Indication: HYPERLIPIDAEMIA
     Dosage: 1 PO DAILY
     Route: 048
  2. LOPERSSOR [Concomitant]
  3. ACCUPRIL [Concomitant]
  4. ASPIRIN [Concomitant]

REACTIONS (2)
  - ABDOMINAL PAIN UPPER [None]
  - CHOLESTASIS [None]
